FAERS Safety Report 15571596 (Version 2)
Quarter: 2019Q1

REPORT INFORMATION
  Report Type: Spontaneous
  Country: GB (occurrence: GB)
  Receive Date: 20181031
  Receipt Date: 20190109
  Transmission Date: 20190417
  Serious: Yes (Other)
  Sender: FDA-Public Use
  Company Number: GB-MYLANLABS-2008S1003485

PATIENT
  Age: 59 Year
  Sex: Male

DRUGS (8)
  1. PREDNISOLONE. [Suspect]
     Active Substance: PREDNISOLONE
     Indication: HODGKIN^S DISEASE MIXED CELLULARITY STAGE IV
     Dosage: (6 MONTHS PREVIOUSLY)
     Route: 065
  2. BLEOMYCIN [Suspect]
     Active Substance: BLEOMYCIN SULFATE
     Indication: HODGKIN^S DISEASE MIXED CELLULARITY STAGE IV
     Dosage: (6 MONTHS PREVIOUSLY)
  3. CHLORAMBUCIL [Suspect]
     Active Substance: CHLORAMBUCIL
     Indication: HODGKIN^S DISEASE MIXED CELLULARITY STAGE IV
     Dosage: UNK,UNK (6 MONTHS PREVIOUSLY)
     Route: 065
  4. CARBAZINE [Suspect]
     Active Substance: CARBAMAZEPINE
     Indication: HODGKIN^S DISEASE MIXED CELLULARITY STAGE IV
     Dosage: UNK, (6 MONTHS PREVIOUSLY)
     Route: 065
  5. VINCRISTINE [Suspect]
     Active Substance: VINCRISTINE
     Indication: HODGKIN^S DISEASE MIXED CELLULARITY STAGE IV
     Dosage: (SECOND CHEMOTHERAPY)
     Route: 065
  6. VINBLASTINE [Suspect]
     Active Substance: VINBLASTINE
     Indication: HODGKIN^S DISEASE MIXED CELLULARITY STAGE IV
     Dosage: UNK (6 MONTHS PREVIOUSLY)
     Route: 065
  7. ADRIAMYCIN [Suspect]
     Active Substance: DOXORUBICIN HYDROCHLORIDE
     Indication: HODGKIN^S DISEASE MIXED CELLULARITY STAGE IV
     Dosage: UNK (UNK (6 MONTHS)
     Route: 065
  8. ETOPOSIDE. [Suspect]
     Active Substance: ETOPOSIDE
     Indication: HODGKIN^S DISEASE MIXED CELLULARITY STAGE IV
     Dosage: (SECOND CHEMOTHERAPY), (6 MONTHS PREVIOUSLY)
     Route: 065

REACTIONS (3)
  - Visual acuity reduced [Not Recovered/Not Resolved]
  - Pancytopenia [Recovering/Resolving]
  - Retinal haemorrhage [Not Recovered/Not Resolved]
